FAERS Safety Report 22295996 (Version 1)
Quarter: 2023Q2

REPORT INFORMATION
  Report Type: Spontaneous
  Country: US (occurrence: US)
  Receive Date: 20230508
  Receipt Date: 20230508
  Transmission Date: 20230722
  Serious: No
  Sender: FDA-Public Use
  Company Number: US-PFIZER INC-PV202300079422

PATIENT
  Age: 81 Year
  Sex: Female

DRUGS (10)
  1. IBRANCE [Suspect]
     Active Substance: PALBOCICLIB
     Indication: Breast cancer female
     Dosage: 75 MG, CYCLIC (TAKE ONE CAPSULE FOR 7 DAYS THEN HOLD FOR 21 DAYS)
     Route: 048
  2. IBRANCE [Suspect]
     Active Substance: PALBOCICLIB
     Indication: Metastatic neoplasm
     Dosage: 75 MG, CYCLIC (75 MG FOR 1 WEEK ON, 3 WEEKS OFF)
     Route: 048
     Dates: start: 20160524
  3. IBRANCE [Suspect]
     Active Substance: PALBOCICLIB
     Indication: Metastases to lung
     Dosage: 75 MG, CYCLIC (75 MG FOR 1 WEEK ON, 3 WEEKS OFF)
     Route: 048
     Dates: start: 201612
  4. IBRANCE [Suspect]
     Active Substance: PALBOCICLIB
     Dosage: 75 MG, CYCLIC (TAKE 1 CAPSULE (75MG) BY MOUTH)
     Route: 048
     Dates: start: 20180403
  5. IBRANCE [Suspect]
     Active Substance: PALBOCICLIB
     Dosage: 75 MG, CYCLIC (TAKE 1 CAPSULE (75 MG) BY MOUTH DAILY FOR 1 WEEK, THEN TAKE 3 WEEKS OFF)
     Route: 048
     Dates: start: 20190108
  6. IBRANCE [Suspect]
     Active Substance: PALBOCICLIB
     Dosage: 75 MG, CYCLIC (TAKE 1 CAPSULE BY MOUTH DAILY FOR 7 DAYS AND THEN HOLD IBRANCE FOR 21 DAYS)
     Route: 048
     Dates: start: 20200102
  7. IBRANCE [Suspect]
     Active Substance: PALBOCICLIB
     Dosage: 75 MG, CYCLIC (TAKE 1 CAPSULE BY MOUTH DAILY FOR 7 DAYS AND THEN HOLD IBRANCE FOR 21 DAYS)
     Route: 048
     Dates: start: 20230106
  8. IBRANCE [Suspect]
     Active Substance: PALBOCICLIB
     Dosage: 75 MG, CYCLIC (TAKE 1 CAPSULE (75 MG) BY MOUTH DAILY FOR 21 DAYS REPEAT EVERY 28 DAYS)
     Route: 048
     Dates: start: 20230202, end: 20230223
  9. IBRANCE [Suspect]
     Active Substance: PALBOCICLIB
     Dosage: 75 MG, CYCLIC (ONE WEEK ON, THREE WEEKS OFF)
     Route: 048
  10. FASLODEX [Concomitant]
     Active Substance: FULVESTRANT
     Dosage: UNK
     Dates: start: 201612

REACTIONS (3)
  - Neoplasm progression [Unknown]
  - Fatigue [Unknown]
  - Off label use [Unknown]
